FAERS Safety Report 10946715 (Version 1)
Quarter: 2015Q1

REPORT INFORMATION
  Report Type: Spontaneous
  Country: US (occurrence: US)
  Receive Date: 20150323
  Receipt Date: 20150323
  Transmission Date: 20150721
  Serious: No
  Sender: FDA-Public Use
  Company Number: US-BAYER-2015-030643

PATIENT
  Sex: Female
  Weight: 54 kg

DRUGS (3)
  1. CELECOXIB. [Concomitant]
     Active Substance: CELECOXIB
     Indication: OSTEOARTHRITIS
     Dosage: 1 DF, QD
     Route: 048
     Dates: start: 201408, end: 20150205
  2. BAYER GENUINE ASPIRIN [Suspect]
     Active Substance: ASPIRIN
  3. TYLENOL [Concomitant]
     Active Substance: ACETAMINOPHEN
     Indication: PAIN IN EXTREMITY
     Dosage: 2 DF, QD
     Dates: start: 20150209, end: 20150209

REACTIONS (2)
  - Allergic respiratory symptom [Not Recovered/Not Resolved]
  - Drug hypersensitivity [Not Recovered/Not Resolved]
